FAERS Safety Report 4988440-3 (Version None)
Quarter: 2006Q2

REPORT INFORMATION
  Report Type: 
  Country: None (occurrence: None)
  Receive Date: 20060502
  Receipt Date: 20060420
  Transmission Date: 20061013
  Serious: Yes (Hospitalization, Other)
  Sender: FDA-Public Use
  Company Number: NL-BRISTOL-MYERS SQUIBB COMPANY-13353461

PATIENT
  Age: 74 Year
  Sex: Male
  Weight: 73 kg

DRUGS (5)
  1. PRAVASTATIN [Suspect]
     Indication: ANGINA UNSTABLE
     Dates: start: 20050901, end: 20060221
  2. CARBASALATE CALCIUM [Concomitant]
  3. METOPROLOL SUCCINATE [Concomitant]
  4. AMLODIPINE [Concomitant]
  5. AMOXICILLIN + CLAVULANIC ACID [Concomitant]

REACTIONS (2)
  - CORONARY ARTERY SURGERY [None]
  - INTERSTITIAL LUNG DISEASE [None]
